FAERS Safety Report 5489393-4 (Version None)
Quarter: 2007Q4

REPORT INFORMATION
  Report Type: 
  Country: None (occurrence: None)
  Receive Date: 20071018
  Receipt Date: 20071008
  Transmission Date: 20080405
  Serious: Yes (Other)
  Sender: FDA-Public Use
  Company Number: IE-AMGEN-UK247579

PATIENT
  Sex: Female

DRUGS (3)
  1. NEULASTA [Suspect]
     Indication: CHEMOTHERAPY
     Dates: start: 20070101
  2. NEUPOGEN [Suspect]
     Indication: CHEMOTHERAPY
     Dates: start: 20070601
  3. MABCAMPATH (ILEX PHARMACEUTICALS) [Concomitant]

REACTIONS (3)
  - EYE SWELLING [None]
  - LACRIMAL DISORDER [None]
  - SWELLING FACE [None]
